FAERS Safety Report 7406865-3 (Version None)
Quarter: 2011Q2

REPORT INFORMATION
  Report Type: 
  Country: None (occurrence: None)
  Receive Date: 20110411
  Receipt Date: 20110117
  Transmission Date: 20111010
  Serious: No
  Sender: FDA-Public Use
  Company Number: US-BAUSCH-2011BL000321

PATIENT
  Sex: Male

DRUGS (1)
  1. ZIRGAN [Suspect]
     Indication: KERATITIS HERPETIC
     Route: 047

REACTIONS (1)
  - VISION BLURRED [None]
